FAERS Safety Report 25845797 (Version 1)
Quarter: 2025Q3

REPORT INFORMATION
  Report Type: Spontaneous
  Country: US (occurrence: None)
  Receive Date: 20250924
  Receipt Date: 20250924
  Transmission Date: 20251021
  Serious: Yes (Other)
  Sender: FDA-CTU
  Company Number: None

PATIENT
  Age: 76 Year
  Sex: Male
  Weight: 115.65 kg

DRUGS (17)
  1. ELIQUIS [Suspect]
     Active Substance: APIXABAN
     Indication: Atrial fibrillation
     Dosage: OTHER QUANTITY : 1 TABLET(S);?FREQUENCY : TWICE A DAY;?
     Route: 048
  2. ALLOPURINOL [Concomitant]
     Active Substance: ALLOPURINOL
  3. PREGABALIN [Concomitant]
     Active Substance: PREGABALIN
  4. REPAGLINIDE [Concomitant]
     Active Substance: REPAGLINIDE
  5. GLIMEPIRIDE [Concomitant]
     Active Substance: GLIMEPIRIDE
  6. ACETAMINOPHEN\OXYCODONE HYDROCHLORIDE [Concomitant]
     Active Substance: ACETAMINOPHEN\OXYCODONE HYDROCHLORIDE
  7. METFORMIN [Concomitant]
     Active Substance: METFORMIN HYDROCHLORIDE
  8. TORSEMIDE [Concomitant]
     Active Substance: TORSEMIDE
  9. PANTOPRAZOLE [Concomitant]
     Active Substance: PANTOPRAZOLE
  10. METOLAZONE [Concomitant]
     Active Substance: METOLAZONE
  11. ATORVASTATIN [Concomitant]
     Active Substance: ATORVASTATIN
  12. potassum chloride [Concomitant]
  13. DULOXETINE [Concomitant]
     Active Substance: DULOXETINE
  14. METOPROLOL SUCCINATE [Concomitant]
     Active Substance: METOPROLOL SUCCINATE
  15. hydrocortisone 2.5% crea [Concomitant]
  16. TYLENOL [Concomitant]
     Active Substance: ACETAMINOPHEN
  17. IBUPROFEN [Concomitant]
     Active Substance: IBUPROFEN

REACTIONS (1)
  - Skin atrophy [None]

NARRATIVE: CASE EVENT DATE: 20200101
